FAERS Safety Report 6020437-7 (Version None)
Quarter: 2008Q4

REPORT INFORMATION
  Report Type: 
  Country: None (occurrence: None)
  Receive Date: 20081226
  Receipt Date: 20081215
  Transmission Date: 20090506
  Serious: Yes (Death, Life-Threatening, Hospitalization)
  Sender: FDA-Public Use
  Company Number: JP-ROCHE-592992

PATIENT
  Sex: Female
  Weight: 53 kg

DRUGS (5)
  1. PEGASYS [Suspect]
     Indication: HEPATITIS C
     Route: 058
     Dates: start: 20080430, end: 20080910
  2. COPEGUS [Suspect]
     Indication: HEPATITIS C
     Dosage: DIVIDED INTO 2 DOSES
     Route: 048
     Dates: start: 20080430, end: 20080520
  3. COPEGUS [Suspect]
     Route: 048
     Dates: start: 20080521, end: 20080617
  4. COPEGUS [Suspect]
     Dosage: DIVIDED INTO 2 DOSES
     Route: 048
     Dates: start: 20080618, end: 20080708
  5. COPEGUS [Suspect]
     Route: 048
     Dates: start: 20080709, end: 20080917

REACTIONS (6)
  - ASCITES [None]
  - CARDIAC FAILURE [None]
  - MULTI-ORGAN FAILURE [None]
  - PLEURAL EFFUSION [None]
  - PNEUMONIA [None]
  - RESPIRATORY DISTRESS [None]
